FAERS Safety Report 6251829-9 (Version None)
Quarter: 2009Q2

REPORT INFORMATION
  Report Type: 
  Country: None (occurrence: None)
  Receive Date: 20090630
  Receipt Date: 20090623
  Transmission Date: 20091009
  Serious: Yes (Hospitalization, Other)
  Sender: FDA-Public Use
  Company Number: US-AVENTIS-200913972US

PATIENT
  Sex: Male
  Weight: 87.09 kg

DRUGS (8)
  1. LOVENOX [Suspect]
     Indication: THROMBOSIS PROPHYLAXIS
     Dates: start: 20090418, end: 20090401
  2. WARFARIN SODIUM [Concomitant]
     Indication: THROMBOSIS PROPHYLAXIS
     Dosage: DOSE: 5MG X4DYS, 2.5MG X2DYS
     Dates: start: 20020101
  3. WARFARIN SODIUM [Concomitant]
     Dosage: DOSE: 5MG X4DYS, 2.5MG X2DYS
     Dates: start: 20020101
  4. FUROSEMIDE INTENSOL [Concomitant]
     Indication: SWELLING
     Dates: start: 20020101
  5. SPIRONOLACTONE [Concomitant]
     Indication: SWELLING
     Dates: start: 20020101
  6. POTASSIUM CHLORIDE [Concomitant]
     Indication: SWELLING
     Dates: start: 20020101
  7. POTASSIUM CHLORIDE [Concomitant]
     Dates: start: 20020101
  8. TIZANIDINE [Concomitant]
     Dates: start: 20020101

REACTIONS (4)
  - ASTHENIA [None]
  - CATHETER SITE HAEMORRHAGE [None]
  - CONTUSION [None]
  - INFECTION [None]
